FAERS Safety Report 4966222-6 (Version None)
Quarter: 2006Q2

REPORT INFORMATION
  Report Type: 
  Country: None (occurrence: None)
  Receive Date: 20060407
  Receipt Date: 20051103
  Transmission Date: 20061013
  Serious: Yes (Death)
  Sender: FDA-Public Use
  Company Number: US-MERCK-0511USA00804

PATIENT
  Age: 67 Year
  Sex: Male
  Weight: 100 kg

DRUGS (19)
  1. VIOXX [Suspect]
     Indication: OSTEOARTHRITIS
     Route: 048
     Dates: start: 20000101, end: 20040501
  2. VIOXX [Suspect]
     Route: 048
  3. ASPIRIN [Concomitant]
     Indication: MYOCARDIAL INFARCTION
     Route: 065
  4. PEPCID [Concomitant]
     Indication: DYSPEPSIA
     Route: 065
  5. LOPRESSOR [Concomitant]
     Indication: HYPERTENSION
     Route: 065
  6. HYDROCHLOROTHIAZIDE [Concomitant]
     Indication: HYPERTENSION
     Route: 065
  7. K-DUR 10 [Concomitant]
     Route: 065
  8. LIPITOR [Concomitant]
     Indication: BLOOD CHOLESTEROL INCREASED
     Route: 065
  9. HYDROCODONE BITARTRATE + ACETAMINOPHEN [Concomitant]
     Route: 065
     Dates: start: 20020101
  10. HYDROCODONE BITARTRATE + ACETAMINOPHEN [Concomitant]
     Route: 065
     Dates: start: 20030101
  11. VICODIN [Concomitant]
     Route: 065
     Dates: start: 20020101
  12. AMOXICILLIN [Concomitant]
     Route: 065
  13. AUGMENTIN '125' [Concomitant]
     Route: 065
  14. AGYRAX (MECLIZINE HYDROCHLORIDE) [Concomitant]
     Indication: STOMACH DISCOMFORT
     Route: 065
  15. CEFZIL [Concomitant]
     Route: 065
  16. GUAIFENEX LA [Concomitant]
     Indication: COUGH
     Route: 065
  17. CEFTIN [Concomitant]
     Route: 065
  18. CELEBREX [Concomitant]
     Indication: ARTHRITIS
     Route: 065
     Dates: start: 20000101
  19. CELEBREX [Concomitant]
     Route: 065
     Dates: start: 20010101

REACTIONS (4)
  - CARDIAC ARREST [None]
  - CORONARY ARTERY DISEASE [None]
  - HYPERLIPIDAEMIA [None]
  - HYPERTENSION [None]
